FAERS Safety Report 4690103-9 (Version None)
Quarter: 2005Q2

REPORT INFORMATION
  Report Type: 
  Country: None (occurrence: None)
  Receive Date: 20050613
  Receipt Date: 20050530
  Transmission Date: 20051028
  Serious: Yes (Disabling)
  Sender: FDA-Public Use
  Company Number: HQWYE025731MAY05

PATIENT
  Age: 35 Year
  Sex: Male

DRUGS (2)
  1. VENLAFAXINE HCL [Suspect]
     Indication: DEPRESSION
     Dosage: 150 MG, FREQUENCY NOT SPECIFIED ORAL
     Route: 048
     Dates: start: 20040501
  2. TRAZODONE HCL [Concomitant]

REACTIONS (1)
  - INFERTILITY MALE [None]
